FAERS Safety Report 23545333 (Version 1)
Quarter: 2024Q1

REPORT INFORMATION
  Report Type: Spontaneous
  Country: CA (occurrence: CA)
  Receive Date: 20240220
  Receipt Date: 20240220
  Transmission Date: 20240409
  Serious: Yes (Other)
  Sender: FDA-Public Use
  Company Number: CA-PFIZER INC-202300114732

PATIENT
  Age: 44 Year
  Sex: Male

DRUGS (3)
  1. CIBINQO [Suspect]
     Active Substance: ABROCITINIB
     Indication: Dermatitis atopic
     Dosage: 200 MG, 1X/DAY
     Route: 048
     Dates: start: 20230312
  2. BETAMETHASONE [Concomitant]
     Active Substance: BETAMETHASONE\BETAMETHASONE DIPROPIONATE
     Dosage: 1 DF
  3. CETIRIZINE [Concomitant]
     Active Substance: CETIRIZINE HYDROCHLORIDE
     Dosage: 1 DF

REACTIONS (7)
  - Tooth disorder [Recovered/Resolved]
  - Fatigue [Unknown]
  - Headache [Unknown]
  - Malaise [Unknown]
  - Eczema [Recovering/Resolving]
  - Erythema [Not Recovered/Not Resolved]
  - Asthma [Not Recovered/Not Resolved]

NARRATIVE: CASE EVENT DATE: 20230101
